FAERS Safety Report 4662942-1 (Version None)
Quarter: 2005Q2

REPORT INFORMATION
  Report Type: 
  Country: None (occurrence: None)
  Receive Date: 20050513
  Receipt Date: 20050318
  Transmission Date: 20051028
  Serious: Yes (Death)
  Sender: FDA-Public Use
  Company Number: 2005S1001360

PATIENT
  Age: 81 Year
  Sex: Male

DRUGS (24)
  1. CLOZAPINE [Suspect]
     Indication: AGGRESSION
     Dosage: 100 MG; BID; PO
     Route: 048
     Dates: start: 20010101, end: 20050315
  2. CLOZAPINE [Suspect]
     Indication: PARANOIA
     Dosage: 100 MG; BID; PO
     Route: 048
     Dates: start: 20010101, end: 20050315
  3. CARBIDOPA AND LEVODOPA [Concomitant]
  4. ROPINIROLE [Concomitant]
  5. HYDROCHLORIDE [Concomitant]
  6. RABEPRAZOLE SODIUM [Concomitant]
  7. ASCORBIC ACID [Concomitant]
  8. CYANOCOBALAMIN [Concomitant]
  9. LOVASTATIN [Concomitant]
  10. BISACODYL [Concomitant]
  11. DIGOXIN [Concomitant]
  12. ZINC SULFATE [Concomitant]
  13. FERROUS SULFATE TAB [Concomitant]
  14. SENNA [Concomitant]
  15. IPRATROPIUM BROMIDE/SALBUTAMOL SULFATE [Concomitant]
  16. CLARITHROMYCIN [Concomitant]
  17. PARACETAMOL [Concomitant]
  18. LOPERAMIDE HCL [Concomitant]
  19. PARACETAMOIL/HYDROCODONE BITARTRATE [Concomitant]
  20. FUROSEMIDE [Concomitant]
  21. CITALOPRAM HYDROBROMIDE [Concomitant]
  22. LORAZEPAM [Concomitant]
  23. QUININE [Concomitant]
  24. CALCIUM GLUCONATE [Concomitant]

REACTIONS (2)
  - CONDITION AGGRAVATED [None]
  - PROSTATE CANCER [None]
